FAERS Safety Report 9841483 (Version 1)
Quarter: 2013Q4

REPORT INFORMATION
  Report Type: Spontaneous
  Country: US (occurrence: None)
  Receive Date: 20131219
  Receipt Date: 20131219
  Transmission Date: 20140711
  Serious: Yes (Death, Other)
  Sender: FDA-Public Use
  Company Number: 163-20785-12112180

PATIENT
  Age: 60 Year
  Sex: Male

DRUGS (9)
  1. THALOMID [Suspect]
     Indication: PLASMA CELL MYELOMA
     Dosage: 2 IN 1 D
     Route: 048
     Dates: start: 201012, end: 201101
  2. GABAPENTIN (GABAPENTIN) (UNKNOWN) (GABAPENTIN) [Concomitant]
  3. MIDODRINE HCL (MIDODRINE HYDROCHLORIDE) (UNKNOWN) [Concomitant]
  4. PANTOPRAZOLE SODIUM (PANTOPRAZOLE SODIUM) (UNKNOWN) [Concomitant]
  5. PROBIOTIC (BIFIDOBACTERIUM LACTIS) (CAPSULES) [Concomitant]
  6. RENAGEL (SEVELAMER HYDROCHLORIDE) (UNKNOWN) [Concomitant]
  7. TAMSULOSIN HCL (TAMSULOSIN HYDROCHLORIDE) (UNKNOWN) [Concomitant]
  8. VELCADE (BORTEZOMIB) (UNKNOWN) [Concomitant]
  9. DEXAMETHASONE (DEXAMETHASONE) (UNKNOWN) [Concomitant]

REACTIONS (3)
  - Death [None]
  - Rectal haemorrhage [None]
  - Thrombocytopenia [None]
